FAERS Safety Report 20764018 (Version 2)
Quarter: 2022Q2

REPORT INFORMATION
  Report Type: Report from Study
  Country: BR (occurrence: BR)
  Receive Date: 20220428
  Receipt Date: 20220609
  Transmission Date: 20220721
  Serious: Yes (Other)
  Sender: FDA-Public Use
  Company Number: BR-JNJFOC-20220440884

PATIENT
  Age: 44 Year
  Sex: Female
  Weight: 54 kg

DRUGS (7)
  1. INFLIXIMAB [Suspect]
     Active Substance: INFLIXIMAB
     Indication: Crohn^s disease
     Route: 042
     Dates: start: 20150101
  2. INFLIXIMAB [Suspect]
     Active Substance: INFLIXIMAB
     Indication: Crohn^s disease
     Route: 042
     Dates: start: 2015
  3. PROMETHAZINE HYDROCHLORIDE [Concomitant]
     Active Substance: PROMETHAZINE HYDROCHLORIDE
  4. AZATHIOPRINE [Concomitant]
     Active Substance: AZATHIOPRINE
  5. AMITRIPTYLINE [Concomitant]
     Active Substance: AMITRIPTYLINE
     Indication: Pain
  6. LEVOTHYROXINE [Concomitant]
     Active Substance: LEVOTHYROXINE
  7. ESTRADIOL [Concomitant]
     Active Substance: ESTRADIOL

REACTIONS (18)
  - Gastrointestinal necrosis [Unknown]
  - Intestinal ulcer [Unknown]
  - Intestinal obstruction [Unknown]
  - Hysterectomy [Unknown]
  - Salpingectomy [Unknown]
  - Oophorectomy [Unknown]
  - Taste disorder [Recovered/Resolved]
  - Tachycardia [Unknown]
  - Bone pain [Unknown]
  - Temperature intolerance [Unknown]
  - Skin discolouration [Unknown]
  - Bladder disorder [Unknown]
  - Somnolence [Unknown]
  - Pyrexia [Recovered/Resolved]
  - Anaemia [Unknown]
  - Urinary tract infection [Unknown]
  - Dizziness [Unknown]
  - Arthralgia [Unknown]

NARRATIVE: CASE EVENT DATE: 20160517
